FAERS Safety Report 23827539 (Version 1)
Quarter: 2024Q2

REPORT INFORMATION
  Report Type: Report from Study
  Country: US (occurrence: US)
  Receive Date: 20240507
  Receipt Date: 20240507
  Transmission Date: 20240716
  Serious: Yes (Hospitalization)
  Sender: FDA-Public Use
  Company Number: US-Eisai-EC-2024-163685

PATIENT
  Age: 63 Year
  Sex: Female

DRUGS (2)
  1. LENVIMA [Suspect]
     Active Substance: LENVATINIB
     Indication: Endometrial cancer
     Dosage: MISSED DOSE FOR 1 WEEK
     Route: 048
     Dates: end: 2024
  2. LENVIMA [Suspect]
     Active Substance: LENVATINIB
     Dosage: MISSED DOSE FOR 1 WEEK
     Route: 048
     Dates: start: 2024

REACTIONS (8)
  - Blood pressure increased [Unknown]
  - Incontinence [Unknown]
  - Fatigue [Unknown]
  - Brain fog [Unknown]
  - Decreased appetite [Unknown]
  - Weight decreased [Unknown]
  - Bone pain [Unknown]
  - Chest injury [Unknown]

NARRATIVE: CASE EVENT DATE: 20240101
